FAERS Safety Report 9859575 (Version 1)
Quarter: 2014Q1

REPORT INFORMATION
  Report Type: Spontaneous
  Country: US (occurrence: US)
  Receive Date: 20140131
  Receipt Date: 20140131
  Transmission Date: 20141002
  Serious: Yes (Hospitalization, Other)
  Sender: FDA-Public Use
  Company Number: US-TEVA-459529USA

PATIENT
  Age: 37 Year
  Sex: Female

DRUGS (6)
  1. CLONAZEPAM [Suspect]
     Route: 048
  2. FLUOXETINE [Suspect]
     Route: 048
  3. PAROXETINE [Suspect]
     Route: 048
  4. PAROXETINE [Suspect]
     Route: 065
  5. QUETIAPINE FUMARATE [Suspect]
     Route: 048
  6. LAMOTRIGINE [Concomitant]
     Route: 065

REACTIONS (4)
  - Loss of consciousness [Recovered/Resolved]
  - Intentional overdose [Recovered/Resolved]
  - Suicide attempt [Recovered/Resolved]
  - Exposure during pregnancy [Recovered/Resolved]
